FAERS Safety Report 10327857 (Version 1)
Quarter: 2014Q3

REPORT INFORMATION
  Report Type: Spontaneous
  Country: CA (occurrence: CA)
  Receive Date: 20140721
  Receipt Date: 20140721
  Transmission Date: 20150326
  Serious: Yes (Life-Threatening)
  Sender: FDA-Public Use
  Company Number: CA-ROCHE-1433934

PATIENT
  Age: 37 Year
  Sex: Male

DRUGS (6)
  1. NEUPOGEN [Concomitant]
     Active Substance: FILGRASTIM
     Route: 042
  2. RITUXAN [Suspect]
     Active Substance: RITUXIMAB
     Indication: PRODUCT USED FOR UNKNOWN INDICATION
     Route: 042
  3. ALLOPURINOL. [Suspect]
     Active Substance: ALLOPURINOL
     Indication: PRODUCT USED FOR UNKNOWN INDICATION
     Route: 065
  4. EPREX [Suspect]
     Active Substance: ERYTHROPOIETIN
     Indication: PRODUCT USED FOR UNKNOWN INDICATION
     Route: 065
  5. LOVENOX [Concomitant]
     Active Substance: ENOXAPARIN SODIUM
     Route: 058
  6. EPREX [Suspect]
     Active Substance: ERYTHROPOIETIN
     Dosage: THERAPY DURATION: 29.0 DAYS
     Route: 058

REACTIONS (10)
  - Anti-erythropoietin antibody positive [Unknown]
  - Aplasia [Unknown]
  - Neutropenia [Unknown]
  - Drug ineffective [Unknown]
  - Haemoglobin decreased [Unknown]
  - Thrombocytopenia [Unknown]
  - Abdominal pain [Unknown]
  - Intestinal perforation [Unknown]
  - Vomiting [Unknown]
  - Dehydration [Unknown]
